FAERS Safety Report 7800388-5 (Version None)
Quarter: 2011Q4

REPORT INFORMATION
  Report Type: 
  Country: None (occurrence: None)
  Receive Date: 20111004
  Receipt Date: 20110926
  Transmission Date: 20120403
  Serious: Yes (Hospitalization)
  Sender: FDA-Public Use
  Company Number: 2011SP045497

PATIENT
  Age: 83 Year
  Sex: Male

DRUGS (9)
  1. LEVEMIR [Concomitant]
  2. ACETYSALICYLIC ACID [Concomitant]
  3. REMERON [Suspect]
     Indication: DEPRESSION
     Dosage: 15 MG;QD;PO
     Route: 048
     Dates: start: 20110524, end: 20110624
  4. FLURAZEPAM HCL [Suspect]
     Indication: ANXIETY
     Dosage: 15 MG;QD;PO
     Route: 048
     Dates: start: 20110524, end: 20110624
  5. EFFEXOR [Suspect]
     Indication: ANXIETY
     Dosage: 150 MG;QD;PO
     Route: 048
     Dates: start: 20110524, end: 20110624
  6. LASIX [Concomitant]
  7. OMEPRAZOLE [Concomitant]
  8. ENALAPRIL MALEATE [Concomitant]
  9. NOVORAPID [Concomitant]

REACTIONS (7)
  - HEADACHE [None]
  - HYPERKALAEMIA [None]
  - BALANCE DISORDER [None]
  - NAUSEA [None]
  - FLATULENCE [None]
  - ATAXIA [None]
  - RENAL FAILURE CHRONIC [None]
